FAERS Safety Report 5276684-5 (Version None)
Quarter: 2007Q1

REPORT INFORMATION
  Report Type: 
  Country: None (occurrence: None)
  Receive Date: 20070327
  Receipt Date: 20070315
  Transmission Date: 20070707
  Serious: Yes (Hospitalization)
  Sender: FDA-Public Use
  Company Number: HQWYE952116MAR07

PATIENT
  Age: 52 Year
  Sex: Female

DRUGS (11)
  1. INIPOMP [Suspect]
     Route: 048
     Dates: end: 20070120
  2. TARGOCID [Suspect]
     Indication: CANDIDIASIS
     Route: 042
     Dates: start: 20061219
  3. RIFADIN [Suspect]
     Indication: CANDIDIASIS
     Route: 048
     Dates: start: 20061219, end: 20070120
  4. CORTANCYL [Suspect]
     Indication: CHORIORETINAL DISORDER
     Route: 048
     Dates: start: 20060421
  5. TROPICAMIDE [Concomitant]
     Indication: CHORIORETINAL DISORDER
     Dosage: UNKNOWN
     Dates: start: 20061219
  6. INSULINE NORDISK [Concomitant]
     Indication: DIABETES MELLITUS INSULIN-DEPENDENT
     Dosage: UNKNOWN
  7. TAREG [Concomitant]
     Indication: ESSENTIAL HYPERTENSION
     Dosage: ^DF^
     Route: 048
  8. ATARAX [Concomitant]
     Indication: ANXIETY
     Dosage: UNKNOWN
  9. FORTUM [Concomitant]
     Indication: CHORIORETINAL DISORDER
     Dosage: UNKNOWN
     Dates: start: 20061219
  10. PREVISCAN [Suspect]
     Indication: PROPHYLAXIS
     Route: 048
     Dates: start: 20061220
  11. TRIFLUCAN [Suspect]
     Indication: CHORIORETINAL DISORDER
     Route: 048
     Dates: start: 20060421, end: 20070102

REACTIONS (1)
  - UVEITIS [None]
